FAERS Safety Report 4381978-1 (Version None)
Quarter: 2004Q2

REPORT INFORMATION
  Report Type: 
  Country: None (occurrence: None)
  Receive Date: 20040603
  Receipt Date: 20030529
  Transmission Date: 20050107
  Serious: Yes (Hospitalization, Other)
  Sender: FDA-Public Use
  Company Number: 200315068US

PATIENT
  Sex: Female
  Weight: 130 kg

DRUGS (1)
  1. LOVENOX [Suspect]
     Indication: DEEP VEIN THROMBOSIS
     Dosage: 130 MG Q12H

REACTIONS (3)
  - INTRA-ABDOMINAL HAEMORRHAGE [None]
  - PULMONARY EMBOLISM [None]
  - SHOCK HAEMORRHAGIC [None]
